FAERS Safety Report 9275196 (Version 8)
Quarter: 2013Q4

REPORT INFORMATION
  Report Type: Report from Study
  Country: CA (occurrence: CA)
  Receive Date: 20130507
  Receipt Date: 20131126
  Transmission Date: 20140711
  Serious: Yes (Other)
  Sender: FDA-Public Use
  Company Number: CA-ROCHE-1221709

PATIENT
  Age: 74 Year
  Sex: Male
  Weight: 106 kg

DRUGS (9)
  1. RITUXAN [Suspect]
     Indication: CHRONIC LYMPHOCYTIC LEUKAEMIA
     Route: 042
     Dates: start: 20100521
  2. RITUXAN [Suspect]
     Route: 042
     Dates: start: 20130827, end: 20131025
  3. COUMADIN [Concomitant]
  4. ATENOLOL [Concomitant]
     Indication: HYPERTENSION
  5. AMLODIPINE [Concomitant]
     Indication: HYPERTENSION
  6. VITAMIN C [Concomitant]
  7. TYLENOL [Concomitant]
     Indication: PREMEDICATION
     Route: 048
     Dates: start: 20100521, end: 20131025
  8. BENADRYL (CANADA) [Concomitant]
     Indication: PREMEDICATION
     Route: 048
     Dates: start: 20100521, end: 20131025
  9. OLMETEC PLUS [Concomitant]
     Indication: BLOOD PRESSURE

REACTIONS (11)
  - Lymphoma [Unknown]
  - Chronic lymphocytic leukaemia recurrent [Not Recovered/Not Resolved]
  - Gait disturbance [Not Recovered/Not Resolved]
  - Dyspnoea [Not Recovered/Not Resolved]
  - Cardiac failure [Unknown]
  - Haemoglobin decreased [Unknown]
  - Urinary tract infection [Unknown]
  - Body temperature increased [Unknown]
  - Hypotension [Unknown]
  - Heart rate increased [Unknown]
  - Drug ineffective [Unknown]
